FAERS Safety Report 19938213 (Version 1)
Quarter: 2021Q4

REPORT INFORMATION
  Report Type: Spontaneous
  Country: US (occurrence: US)
  Receive Date: 20211011
  Receipt Date: 20211011
  Transmission Date: 20220304
  Serious: No
  Sender: FDA-Public Use
  Company Number: US-AUROBINDO-AUR-APL-2021-015780

PATIENT
  Sex: Female

DRUGS (1)
  1. OMEPRAZOLE [Suspect]
     Active Substance: OMEPRAZOLE
     Indication: Productive cough
     Dosage: UNK UNK, ONCE A DAY
     Route: 065

REACTIONS (3)
  - Rhinorrhoea [Unknown]
  - Productive cough [Unknown]
  - Extra dose administered [Unknown]
